FAERS Safety Report 12527615 (Version 2)
Quarter: 2016Q3

REPORT INFORMATION
  Report Type: Report from Study
  Country: IT (occurrence: IT)
  Receive Date: 20160705
  Receipt Date: 20160715
  Transmission Date: 20161109
  Serious: Yes (Death)
  Sender: FDA-Public Use
  Company Number: IT-009507513-1607ITA000077

PATIENT
  Age: 60 Year
  Sex: Female

DRUGS (1)
  1. POSACONAZOLE [Suspect]
     Active Substance: POSACONAZOLE
     Indication: PROPHYLAXIS
     Dosage: TOTAL DAILY DOSE: 3 DF, TID; STRENGH: 100 MG
     Route: 048
     Dates: end: 20160313

REACTIONS (1)
  - Infection [Fatal]

NARRATIVE: CASE EVENT DATE: 20160312
